FAERS Safety Report 7802884-3 (Version None)
Quarter: 2011Q4

REPORT INFORMATION
  Report Type: 
  Country: None (occurrence: None)
  Receive Date: 20111005
  Receipt Date: 20110926
  Transmission Date: 20120403
  Serious: Yes (Hospitalization, Other)
  Sender: FDA-Public Use
  Company Number: 2009JP007452

PATIENT
  Age: 75 Year
  Sex: Male
  Weight: 75 kg

DRUGS (16)
  1. METHYLCOBAL (MECOBALAMIN) [Concomitant]
  2. BONALON (ALENDRONATE SODIUM) [Concomitant]
  3. GANCICLOVIR [Concomitant]
  4. METHYLPREDNISOLONE [Suspect]
     Indication: STILL'S DISEASE ADULT ONSET
     Dosage: 1 G, IV DRIP
     Route: 041
     Dates: start: 20090129, end: 20090131
  5. PREDNISOLONE [Suspect]
     Indication: STILL'S DISEASE ADULT ONSET
     Dosage: 15 MG, ORAL, 60 MG, ORAL, ORAL, 6 MG, ORAL, 40 MG, ORAL, 11 MG, ORAL, 30 MG, ORAL, ORAL
     Route: 048
     Dates: start: 20090116, end: 20090101
  6. PREDNISOLONE [Suspect]
     Indication: STILL'S DISEASE ADULT ONSET
     Dosage: 15 MG, ORAL, 60 MG, ORAL, ORAL, 6 MG, ORAL, 40 MG, ORAL, 11 MG, ORAL, 30 MG, ORAL, ORAL
     Route: 048
     Dates: start: 20090101, end: 20090101
  7. PREDNISOLONE [Suspect]
     Indication: STILL'S DISEASE ADULT ONSET
     Dosage: 15 MG, ORAL, 60 MG, ORAL, ORAL, 6 MG, ORAL, 40 MG, ORAL, 11 MG, ORAL, 30 MG, ORAL, ORAL
     Route: 048
     Dates: start: 20090101
  8. PREDNISOLONE [Suspect]
     Indication: STILL'S DISEASE ADULT ONSET
     Dosage: 15 MG, ORAL, 60 MG, ORAL, ORAL, 6 MG, ORAL, 40 MG, ORAL, 11 MG, ORAL, 30 MG, ORAL, ORAL
     Route: 048
     Dates: start: 20081226, end: 20090115
  9. ITRACONAZOLE [Concomitant]
  10. RABEPRAZOLE SODIUM [Concomitant]
  11. URIEF (SILODOSIN) [Concomitant]
  12. VALACICLOVIR [Concomitant]
  13. PROGRAF [Suspect]
     Indication: STILL'S DISEASE ADULT ONSET
     Dosage: 2 MG, ORAL, 1.5 MG, ORAL, 3MG, ORAL
     Route: 048
     Dates: start: 20090203, end: 20090101
  14. PROGRAF [Suspect]
     Indication: STILL'S DISEASE ADULT ONSET
     Dosage: 2 MG, ORAL, 1.5 MG, ORAL, 3MG, ORAL
     Route: 048
     Dates: start: 20090101
  15. PROGRAF [Suspect]
     Indication: STILL'S DISEASE ADULT ONSET
     Dosage: 2 MG, ORAL, 1.5 MG, ORAL, 3MG, ORAL
     Route: 048
     Dates: end: 20101104
  16. MAGLAX (MAGNESIUM OXIDE) [Concomitant]

REACTIONS (8)
  - PLATELET COUNT DECREASED [None]
  - OFF LABEL USE [None]
  - SKIN ULCER [None]
  - PURPURA [None]
  - OESOPHAGEAL CANDIDIASIS [None]
  - PNEUMONIA BACTERIAL [None]
  - HERPES DERMATITIS [None]
  - CYTOMEGALOVIRUS MUCOCUTANEOUS ULCER [None]
